FAERS Safety Report 12904390 (Version 1)
Quarter: 2016Q4

REPORT INFORMATION
  Report Type: Spontaneous
  Country: ES (occurrence: ES)
  Receive Date: 20161102
  Receipt Date: 20161102
  Transmission Date: 20170207
  Serious: Yes (Hospitalization)
  Sender: FDA-Public Use
  Company Number: ES-BAUSCH-BL-2016-026850

PATIENT
  Age: 79 Year
  Sex: Female

DRUGS (1)
  1. GENTAMICIN. [Suspect]
     Active Substance: GENTAMICIN
     Indication: MENIERE^S DISEASE
     Dosage: INTRATYMPANIC, 30MG/ML
     Route: 065

REACTIONS (2)
  - Strabismus [Recovered/Resolved]
  - Diplopia [Recovered/Resolved]

NARRATIVE: CASE EVENT DATE: 20140716
